FAERS Safety Report 5148849-4 (Version None)
Quarter: 2006Q4

REPORT INFORMATION
  Report Type: 
  Country: None (occurrence: None)
  Receive Date: 20061113
  Receipt Date: 20061108
  Transmission Date: 20070319
  Serious: Yes (Hospitalization, Other)
  Sender: FDA-Public Use
  Company Number: AU-BRISTOL-MYERS SQUIBB COMPANY-13570882

PATIENT
  Age: 79 Year
  Sex: Female
  Weight: 68 kg

DRUGS (17)
  1. IRBESARTAN + HYDROCHLOROTHIAZIDE [Suspect]
     Indication: ESSENTIAL HYPERTENSION
     Route: 048
  2. TRAMADOL HCL [Suspect]
     Indication: PAIN
  3. CARBAMAZEPINE [Suspect]
     Indication: PAIN
     Route: 048
  4. FUROSEMIDE [Suspect]
  5. FELODIPINE [Concomitant]
     Indication: ESSENTIAL HYPERTENSION
  6. SOLPRIN [Concomitant]
     Indication: MYOCARDIAL ISCHAEMIA
  7. METOPROLOL TARTRATE [Concomitant]
     Indication: ESSENTIAL HYPERTENSION
  8. TRANSDERM-NITRO [Concomitant]
     Indication: ANGINA PECTORIS
  9. OMEPRAZOLE [Concomitant]
     Indication: OESOPHAGEAL DISORDER
  10. NITROGLYCERIN [Concomitant]
     Indication: ANGINA PECTORIS
  11. QUININE SULFATE [Concomitant]
     Indication: PAIN IN EXTREMITY
  12. ACETAMINOPHEN W/ CODEINE [Concomitant]
     Indication: PAIN
  13. ACETAMINOPHEN [Concomitant]
     Indication: PAIN
  14. FOSAMAX [Concomitant]
     Indication: OSTEOPOROSIS
  15. PULMICORT [Concomitant]
     Indication: ASTHMA
  16. BRICANYL [Concomitant]
     Indication: ASTHMA
  17. OSTELIN [Concomitant]
     Indication: OSTEOPOROSIS

REACTIONS (6)
  - AMNESIA [None]
  - CONFUSIONAL STATE [None]
  - DIZZINESS [None]
  - HYPONATRAEMIA [None]
  - INAPPROPRIATE ANTIDIURETIC HORMONE SECRETION [None]
  - POLYDIPSIA [None]
